FAERS Safety Report 12387925 (Version 1)
Quarter: 2016Q2

REPORT INFORMATION
  Report Type: Spontaneous
  Country: US (occurrence: None)
  Receive Date: 20160517
  Receipt Date: 20160517
  Transmission Date: 20160815
  Serious: No
  Sender: FDA-Public Use
  Company Number: UNT-2016-006982

PATIENT
  Age: 53 Year
  Sex: Male
  Weight: 63.5 kg

DRUGS (2)
  1. LETAIRIS [Suspect]
     Active Substance: AMBRISENTAN
     Indication: PRODUCT USED FOR UNKNOWN INDICATION
     Dates: start: 20120221
  2. TYVASO [Suspect]
     Active Substance: TREPROSTINIL
     Indication: PULMONARY HYPERTENSION
     Dosage: 18-54 MICROGRAMS, QID, INHALATION
     Route: 055
     Dates: start: 20130117

REACTIONS (4)
  - Device issue [None]
  - Flushing [None]
  - Headache [None]
  - Incorrect dose administered by device [None]
